FAERS Safety Report 6442224-8 (Version None)
Quarter: 2009Q4

REPORT INFORMATION
  Report Type: 
  Country: None (occurrence: None)
  Receive Date: 20091116
  Receipt Date: 20091106
  Transmission Date: 20100525
  Serious: Yes (Hospitalization)
  Sender: FDA-Public Use
  Company Number: US-ABBOTT-09P-163-0607486-00

PATIENT
  Sex: Female
  Weight: 67.646 kg

DRUGS (15)
  1. HUMIRA [Suspect]
     Indication: PSORIATIC ARTHROPATHY
     Route: 058
     Dates: start: 20060613
  2. RITALIN [Concomitant]
     Indication: DRUG USE FOR UNKNOWN INDICATION
  3. ATENOLOL [Concomitant]
     Indication: TACHYCARDIA
  4. LASIX [Concomitant]
     Indication: DRUG USE FOR UNKNOWN INDICATION
  5. POTASSIUM CHLORIDE [Concomitant]
     Indication: DRUG USE FOR UNKNOWN INDICATION
  6. CYMBALTA [Concomitant]
     Indication: DRUG USE FOR UNKNOWN INDICATION
  7. TOPAMAX [Concomitant]
     Indication: DRUG USE FOR UNKNOWN INDICATION
  8. DOMPERIDOM [Concomitant]
     Indication: GASTROOESOPHAGEAL REFLUX DISEASE
  9. ZEGERID [Concomitant]
     Indication: DRUG USE FOR UNKNOWN INDICATION
  10. ENABLEX [Concomitant]
     Indication: DRUG USE FOR UNKNOWN INDICATION
  11. LIPITOR [Concomitant]
     Indication: DRUG USE FOR UNKNOWN INDICATION
  12. CALCIUM [Concomitant]
     Indication: DRUG USE FOR UNKNOWN INDICATION
  13. M.V.I. [Concomitant]
     Indication: DRUG USE FOR UNKNOWN INDICATION
  14. RESTASIS [Concomitant]
     Indication: DRUG USE FOR UNKNOWN INDICATION
  15. NAPROXYN OTC [Concomitant]
     Indication: DRUG USE FOR UNKNOWN INDICATION

REACTIONS (3)
  - ARTHROPOD BITE [None]
  - MEDICAL DEVICE REMOVAL [None]
  - SPINAL OPERATION [None]
